FAERS Safety Report 18541979 (Version 1)
Quarter: 2020Q4

REPORT INFORMATION
  Report Type: Spontaneous
  Country: US (occurrence: US)
  Receive Date: 20201125
  Receipt Date: 20201125
  Transmission Date: 20210114
  Serious: No
  Sender: FDA-Public Use
  Company Number: US-GLENMARK PHARMACEUTICALS-2020GMK046515

PATIENT

DRUGS (1)
  1. PRAMIPEXOLE DIHYDROCHLORIDE. [Suspect]
     Active Substance: PRAMIPEXOLE DIHYDROCHLORIDE
     Indication: PARKINSON^S DISEASE
     Dosage: 1 DF, TID (3 MG PER DAY)
     Route: 048
     Dates: start: 2019

REACTIONS (4)
  - Product physical issue [Unknown]
  - Product quality issue [Unknown]
  - Intentional product use issue [Unknown]
  - No adverse event [Unknown]
